FAERS Safety Report 7291834-7 (Version None)
Quarter: 2011Q1

REPORT INFORMATION
  Report Type: 
  Country: None (occurrence: None)
  Receive Date: 20110202
  Receipt Date: 20110117
  Transmission Date: 20110831
  Serious: Yes (Other)
  Sender: FDA-Public Use
  Company Number: 2009S1002429

PATIENT
  Age: 63 Year
  Sex: Female
  Weight: 52.1637 kg

DRUGS (8)
  1. COMBIVENT [Concomitant]
  2. CAFERGOT [Concomitant]
  3. NABUMETONE [Concomitant]
  4. LEVOTHYROXINE /00068002/ [Concomitant]
  5. EFFEXOR XR [Concomitant]
  6. ADVAIR DISKUS 100/50 [Concomitant]
  7. PHOSPHOSODA FLAVOR NOT SPECIFIED [Suspect]
     Indication: COLONOSCOPY
     Dosage: 45 ML; TOTAL; PO
     Route: 048
     Dates: start: 20070312, end: 20070312
  8. SINGULAIR [Concomitant]

REACTIONS (8)
  - DECREASED APPETITE [None]
  - HYPOAESTHESIA [None]
  - RENAL CYST [None]
  - RENAL FAILURE CHRONIC [None]
  - RENAL FAILURE ACUTE [None]
  - FATIGUE [None]
  - ACUTE PHOSPHATE NEPHROPATHY [None]
  - MUSCULAR WEAKNESS [None]
